FAERS Safety Report 4878877-5 (Version None)
Quarter: 2006Q1

REPORT INFORMATION
  Report Type: 
  Country: None (occurrence: None)
  Receive Date: 20060110
  Receipt Date: 20060110
  Transmission Date: 20060701
  Serious: Yes (Hospitalization)
  Sender: FDA-Public Use
  Company Number: None

PATIENT
  Age: 45 Year
  Sex: Female
  Weight: 60.3284 kg

DRUGS (12)
  1. TAXOTERE [Suspect]
     Indication: BREAST CANCER
     Dosage: 100 MG/M2 Q2 WEEKS IV (164 MG)
     Route: 042
     Dates: start: 20051019, end: 20051102
  2. TAXOTERE [Suspect]
     Indication: BREAST CANCER
     Dosage: 100 MG/M2 Q2 WEEKS IV (164 MG)
     Route: 042
     Dates: start: 20051116
  3. TAXOTERE [Suspect]
     Indication: BREAST CANCER
     Dosage: 100 MG/M2 Q2 WEEKS IV (164 MG)
     Route: 042
     Dates: start: 20051130
  4. NORCO [Concomitant]
  5. MS CONTIN [Concomitant]
  6. NEURONTIN [Concomitant]
  7. RESTORIL [Concomitant]
  8. EFFEXOR [Concomitant]
  9. ZADITOR [Concomitant]
  10. HYDROCORTIZONE CREAM [Concomitant]
  11. DECADRON [Concomitant]
  12. NEULASTA [Concomitant]

REACTIONS (4)
  - DEHYDRATION [None]
  - DIARRHOEA [None]
  - NAUSEA [None]
  - VOMITING [None]
